FAERS Safety Report 18635816 (Version 1)
Quarter: 2020Q4

REPORT INFORMATION
  Report Type: Spontaneous
  Country: JP (occurrence: JP)
  Receive Date: 20201218
  Receipt Date: 20201218
  Transmission Date: 20210114
  Serious: Yes (Other)
  Sender: FDA-Public Use
  Company Number: NVSJ2020JP013033

PATIENT
  Age: 50 Year
  Sex: Female

DRUGS (3)
  1. LETROZOLE. [Suspect]
     Active Substance: LETROZOLE
     Dosage: UNK
     Route: 065
  2. LETROZOLE. [Suspect]
     Active Substance: LETROZOLE
     Indication: BREAST CANCER STAGE II
     Dosage: UNK
     Route: 065
  3. PALBOCICLIB [Concomitant]
     Active Substance: PALBOCICLIB
     Indication: BREAST CANCER STAGE II
     Dosage: UNK
     Route: 065

REACTIONS (5)
  - Metastases to bladder [Unknown]
  - Metastases to ovary [Unknown]
  - Malignant neoplasm progression [Unknown]
  - Anaemia [Unknown]
  - Breast cancer stage II [Unknown]
